FAERS Safety Report 6423942-4 (Version None)
Quarter: 2009Q4

REPORT INFORMATION
  Report Type: 
  Country: None (occurrence: None)
  Receive Date: 20091102
  Receipt Date: 20091020
  Transmission Date: 20100525
  Serious: Yes (Other)
  Sender: FDA-Public Use
  Company Number: PHEH2009US07813

PATIENT
  Sex: Female
  Weight: 56.689 kg

DRUGS (6)
  1. RECLAST [Suspect]
     Indication: OSTEOPOROSIS
     Dosage: 1 X DOSE
     Route: 042
     Dates: start: 20080601, end: 20080601
  2. LISINOPRIL [Concomitant]
     Indication: HYPERTENSION
     Dosage: 10 MG, QD
     Route: 048
  3. SIMVASTATIN [Concomitant]
     Indication: HYPERCHOLESTEROLAEMIA
     Dosage: 20 MG, QD
     Route: 048
  4. LANTUS [Concomitant]
     Indication: DIABETES MELLITUS
     Dosage: 40 ML, QD
     Route: 048
  5. CYMBALTA [Concomitant]
     Indication: ANXIETY
     Dosage: 60 MG, QD
     Route: 048
  6. SONATA [Concomitant]
     Indication: INSOMNIA
     Dosage: 10 MG, PRN
     Route: 048

REACTIONS (4)
  - BONE DISORDER [None]
  - GINGIVAL DISORDER [None]
  - OSTEONECROSIS [None]
  - TOOTH EXTRACTION [None]
